FAERS Safety Report 13363555 (Version 1)
Quarter: 2017Q1

REPORT INFORMATION
  Report Type: Spontaneous
  Country: FR (occurrence: FR)
  Receive Date: 20170323
  Receipt Date: 20170323
  Transmission Date: 20170429
  Serious: Yes (Death, Hospitalization)
  Sender: FDA-Public Use
  Company Number: FR-ASTRAZENECA-2017SE29483

PATIENT
  Age: 23337 Day
  Sex: Male

DRUGS (11)
  1. IMOVANE [Concomitant]
     Active Substance: ZOPICLONE
     Route: 048
  2. SILODOSIN [Concomitant]
     Active Substance: SILODOSIN
     Route: 048
  3. DUROGESIC [Concomitant]
     Active Substance: FENTANYL
     Dosage: 50 ???G/H, 1 PATCH/72H
     Route: 062
  4. PLAVIX [Concomitant]
     Active Substance: CLOPIDOGREL BISULFATE
     Route: 048
  5. INEXIUM [Suspect]
     Active Substance: ESOMEPRAZOLE
     Dosage: 1 UNIT X4 / DAY
     Route: 048
     Dates: start: 20170215, end: 20170218
  6. METOPIMAZINE [Suspect]
     Active Substance: METOPIMAZINE
     Route: 048
     Dates: start: 20170215, end: 20170218
  7. LESCOL SR [Concomitant]
     Route: 048
  8. PANTOPRAZOLE [Concomitant]
     Active Substance: PANTOPRAZOLE SODIUM
     Route: 048
  9. OXYNORM [Concomitant]
     Active Substance: OXYCODONE HYDROCHLORIDE
     Dosage: 20 MG X 2-3/DAY
     Route: 048
  10. OPDIVO [Suspect]
     Active Substance: NIVOLUMAB
     Indication: HEPATIC CANCER METASTATIC
     Dosage: 189 MG ONCE, CYCLE 1
     Route: 042
     Dates: start: 20170207, end: 20170207
  11. SERESTA [Concomitant]
     Active Substance: OXAZEPAM
     Dosage: 10 MG PRN
     Route: 048

REACTIONS (1)
  - Hepatitis [Fatal]

NARRATIVE: CASE EVENT DATE: 20170218
